FAERS Safety Report 23210583 (Version 4)
Quarter: 2024Q1

REPORT INFORMATION
  Report Type: Spontaneous
  Country: JP (occurrence: JP)
  Receive Date: 20231121
  Receipt Date: 20240312
  Transmission Date: 20240410
  Serious: Yes (Disabling)
  Sender: FDA-Public Use
  Company Number: JP-GSKNCCC-Case-01840606_AE-76623

PATIENT
  Age: 49 Year
  Sex: Female
  Weight: 54 kg

DRUGS (5)
  1. BOTOX [Suspect]
     Active Substance: ONABOTULINUMTOXINA
     Indication: Muscle spasms
     Dosage: TIME INTERVAL: AS NECESSARY: 600 IU (350 IU FOR UPPER EXTREMITIES, 250 IU FOR LOWER EXTREMITIES),...
     Route: 030
     Dates: start: 20231006, end: 20231006
  2. BOTOX [Suspect]
     Active Substance: ONABOTULINUMTOXINA
     Indication: Muscle spasms
     Dosage: TIME INTERVAL: AS NECESSARY: 500 IU, SINGLE
     Route: 030
     Dates: start: 20230623, end: 20230623
  3. OLOPATADINE [Concomitant]
     Active Substance: OLOPATADINE
     Indication: Urticaria
     Dosage: 10 MG, QD
     Route: 048
     Dates: start: 20210219
  4. OLMESARTAN MEDOXOMIL [Concomitant]
     Active Substance: OLMESARTAN MEDOXOMIL
     Indication: Hypertension
     Dosage: 10 MG, QD
     Route: 048
     Dates: start: 20191030
  5. LANSOPRAZOLE [Concomitant]
     Active Substance: LANSOPRAZOLE
     Indication: Gastrooesophageal reflux disease
     Dosage: 15 MG 1 TABLET
     Route: 048
     Dates: start: 20191030

REACTIONS (4)
  - Pain in extremity [Recovering/Resolving]
  - Hyperkeratosis [Recovered/Resolved]
  - Gait disturbance [Recovering/Resolving]
  - Condition aggravated [Recovered/Resolved]

NARRATIVE: CASE EVENT DATE: 20231007
